FAERS Safety Report 8425652-0 (Version None)
Quarter: 2012Q2

REPORT INFORMATION
  Report Type: 
  Country: None (occurrence: None)
  Receive Date: 20120611
  Receipt Date: 20120531
  Transmission Date: 20120825
  Serious: Yes (Life-Threatening, Hospitalization, Other)
  Sender: FDA-Public Use
  Company Number: PHHY2012JP048558

PATIENT
  Sex: Female

DRUGS (5)
  1. TASIGNA [Suspect]
     Dosage: 800 MG, DAILY
     Route: 048
     Dates: start: 20100617
  2. EURAX [Concomitant]
  3. TASIGNA [Suspect]
     Dosage: 600 MG, DAILY
     Route: 048
     Dates: start: 20090729, end: 20100616
  4. TASIGNA [Suspect]
     Indication: CHRONIC MYELOID LEUKAEMIA
     Dosage: 400 MG, DAILY
     Route: 048
     Dates: start: 20090617, end: 20090728
  5. EPINASTINE HYDROCHLORIDE [Concomitant]

REACTIONS (6)
  - NEUTROPHIL COUNT INCREASED [None]
  - LYMPHOCYTE COUNT DECREASED [None]
  - CATARACT [None]
  - LUNG NEOPLASM MALIGNANT [None]
  - NEOPLASM MALIGNANT [None]
  - SEPSIS [None]
